FAERS Safety Report 6238684-8 (Version None)
Quarter: 2009Q2

REPORT INFORMATION
  Report Type: 
  Country: None (occurrence: None)
  Receive Date: 20090622
  Receipt Date: 20090609
  Transmission Date: 20091009
  Serious: Yes (Other)
  Sender: FDA-Public Use
  Company Number: US-ELI_LILLY_AND_COMPANY-US200903006795

PATIENT
  Sex: Female

DRUGS (16)
  1. CYMBALTA [Suspect]
     Indication: NEURALGIA
     Dosage: 60 MG, DAILY (1/D)
  2. ZYPREXA [Suspect]
  3. NEURONTIN [Concomitant]
  4. LANTUS [Concomitant]
  5. GLUCOTROL [Concomitant]
  6. TOPAMAX [Concomitant]
  7. DARVOCET [Concomitant]
  8. LOPID [Concomitant]
  9. MIRAPEX [Concomitant]
  10. TAMOXIFEN CITRATE [Concomitant]
  11. ALLEGRA [Concomitant]
  12. AMBIEN [Concomitant]
  13. DIOVAN [Concomitant]
  14. SOMA [Concomitant]
  15. LOPRESSOR [Concomitant]
  16. NORVASC [Concomitant]

REACTIONS (2)
  - ADVERSE EVENT [None]
  - TARDIVE DYSKINESIA [None]
